FAERS Safety Report 23731601 (Version 1)
Quarter: 2024Q2

REPORT INFORMATION
  Report Type: Spontaneous
  Country: US (occurrence: None)
  Receive Date: 20240410
  Receipt Date: 20240410
  Transmission Date: 20240716
  Serious: No
  Sender: FDA-Public Use
  Company Number: None

PATIENT
  Sex: Female

DRUGS (2)
  1. ANAGRELIDE [Suspect]
     Active Substance: ANAGRELIDE
     Indication: Essential thrombocythaemia
  2. COVID-19 VACCINE NOS [Suspect]
     Active Substance: COVID-19 VACCINE NOS

REACTIONS (8)
  - Illness [None]
  - Influenza [None]
  - Rheumatoid arthritis [None]
  - Incorrect dose administered [None]
  - Emotional disorder [None]
  - Depressed mood [None]
  - Energy increased [None]
  - General physical health deterioration [None]
